FAERS Safety Report 12605399 (Version 2)
Quarter: 2016Q3

REPORT INFORMATION
  Report Type: Spontaneous
  Country: US (occurrence: US)
  Receive Date: 20160729
  Receipt Date: 20160901
  Transmission Date: 20161109
  Serious: Yes (Other)
  Sender: FDA-Public Use
  Company Number: US-RECKITT BENCKISER HEALTHCARE INT LIMITED-RB-88237-2016

PATIENT
  Age: 68 Year
  Sex: Female

DRUGS (1)
  1. CLEARASIL ULTRA VANISHING RAPID ACTION TREATMENT [Suspect]
     Active Substance: BENZOYL PEROXIDE
     Indication: ACNE
     Dosage: UNK
     Route: 061
     Dates: start: 20160716

REACTIONS (11)
  - Swelling face [Unknown]
  - Application site erythema [None]
  - Hypersensitivity [Unknown]
  - Inflammation [Unknown]
  - Product packaging confusion [None]
  - Skin irritation [Unknown]
  - Application site swelling [None]
  - Reaction to drug excipients [None]
  - Erythema [Unknown]
  - Application site irritation [None]
  - Milia [Not Recovered/Not Resolved]

NARRATIVE: CASE EVENT DATE: 2016
